FAERS Safety Report 6540876-5 (Version None)
Quarter: 2010Q1

REPORT INFORMATION
  Report Type: 
  Country: None (occurrence: None)
  Receive Date: 20100118
  Receipt Date: 20100112
  Transmission Date: 20100710
  Serious: Yes (Life-Threatening, Other)
  Sender: FDA-Public Use
  Company Number: PHEH2009US18701

PATIENT
  Sex: Male

DRUGS (5)
  1. EXJADE [Suspect]
     Dosage: 500 MG, TID
  2. BARBITAL [Suspect]
  3. BARBITURATES [Suspect]
  4. PERCOCET [Suspect]
  5. AMITRIPTYLINE [Suspect]

REACTIONS (2)
  - INTENTIONAL OVERDOSE [None]
  - SUICIDE ATTEMPT [None]
